FAERS Safety Report 5157928-7 (Version None)
Quarter: 2006Q4

REPORT INFORMATION
  Report Type: 
  Country: None (occurrence: None)
  Receive Date: 20061115
  Receipt Date: 20061030
  Transmission Date: 20070319
  Serious: Yes (Other)
  Sender: FDA-Public Use
  Company Number: 8018668

PATIENT
  Age: 43 Year
  Sex: Female
  Weight: 57 kg

DRUGS (2)
  1. KEPPRA [Suspect]
     Indication: PARTIAL SEIZURES
     Dosage: 250 MG 2/D PO
     Route: 048
     Dates: start: 20060720
  2. TEGRETOL [Concomitant]

REACTIONS (4)
  - BONE DISORDER [None]
  - GINGIVAL RECESSION [None]
  - GINGIVITIS [None]
  - HAEMORRHAGIC DIATHESIS [None]
